FAERS Safety Report 9584146 (Version 1)
Quarter: 2013Q4

REPORT INFORMATION
  Report Type: Spontaneous
  Country: US (occurrence: US)
  Receive Date: 20131002
  Receipt Date: 20131002
  Transmission Date: 20140711
  Serious: No
  Sender: FDA-Public Use
  Company Number: US-AMGEN-USASP2013052096

PATIENT
  Age: 48 Year
  Sex: Female
  Weight: 74.83 kg

DRUGS (8)
  1. ENBREL [Suspect]
     Indication: PRODUCT USED FOR UNKNOWN INDICATION
     Dosage: 50 MG/ML, QWK
     Route: 058
  2. PREMARIN [Concomitant]
     Dosage: 0.625 MG, UNK
  3. OMEPRAZOLE [Concomitant]
     Dosage: 20.6 MG, DR
  4. FLEXERIL                           /00428402/ [Concomitant]
     Dosage: 10 MG, UNK
  5. FOLIC ACID [Concomitant]
  6. METHOTREXATE [Concomitant]
     Dosage: 2.5 MG, UNK
  7. MOBIC [Concomitant]
     Dosage: 7.5 MG, UNK
  8. MULTIVITAMINS, PLAIN [Concomitant]
     Dosage: UNK

REACTIONS (1)
  - Hernia [Unknown]
